FAERS Safety Report 5999874-2 (Version None)
Quarter: 2008Q4

REPORT INFORMATION
  Report Type: 
  Country: None (occurrence: None)
  Receive Date: 20081211
  Receipt Date: 20080813
  Transmission Date: 20090506
  Serious: No
  Sender: FDA-Public Use
  Company Number: US024370

PATIENT
  Age: 72 Year
  Sex: Male

DRUGS (9)
  1. TREANDA [Suspect]
     Dosage: 34 MG IN 500 ML ONCE INTRAVENOUS
     Route: 042
  2. TREANDA [Suspect]
     Dosage: 34 MG IN 500 ML ONCE INTRAVENOUS
     Route: 042
  3. TREANDA [Suspect]
     Dosage: 34 MG IN 500 ML ONCE INTRAVENOUS
     Route: 042
  4. TREANDA [Suspect]
     Dosage: 34 MG IN 500 ML (FOURTH CYCLE) ONCE INTRAVENOUS
     Route: 042
  5. VELCADE [Concomitant]
  6. THALIDOMIDE [Concomitant]
  7. EMEND [Concomitant]
  8. KYTRIL [Concomitant]
  9. VANCOMYCIN [Concomitant]

REACTIONS (1)
  - INFUSION SITE EXTRAVASATION [None]
